FAERS Safety Report 16063840 (Version 1)
Quarter: 2019Q1

REPORT INFORMATION
  Report Type: Spontaneous
  Country: US (occurrence: US)
  Receive Date: 20190312
  Receipt Date: 20190312
  Transmission Date: 20190418
  Serious: Yes (Other)
  Sender: FDA-Public Use
  Company Number: US-JNJFOC-20190301849

PATIENT
  Sex: Female

DRUGS (16)
  1. AMITRIPTYLIN [Concomitant]
     Active Substance: AMITRIPTYLINE
     Route: 065
  2. HYDROCODONE BITARTRATE AND ACETAMINOPHEN [Concomitant]
     Active Substance: ACETAMINOPHEN\HYDROCODONE BITARTRATE
     Dosage: 10-325 MG
     Route: 065
  3. MORPHINE SULPHATE [Concomitant]
     Active Substance: MORPHINE SULFATE
     Route: 065
  4. LOSARTAN. [Concomitant]
     Active Substance: LOSARTAN
     Route: 065
  5. LOVASTATIN. [Concomitant]
     Active Substance: LOVASTATIN
     Route: 065
  6. FLUCONAZOLE. [Concomitant]
     Active Substance: FLUCONAZOLE
     Route: 065
  7. CARISOPRODOL. [Concomitant]
     Active Substance: CARISOPRODOL
     Route: 065
  8. DULOXETINE. [Concomitant]
     Active Substance: DULOXETINE
     Route: 065
  9. LANSOPRAZOLE. [Concomitant]
     Active Substance: LANSOPRAZOLE
     Route: 065
  10. STELARA [Suspect]
     Active Substance: USTEKINUMAB
     Indication: PSORIASIS
     Route: 058
     Dates: start: 201612
  11. CARVEDILOL. [Concomitant]
     Active Substance: CARVEDILOL
     Route: 065
  12. NIACIN. [Concomitant]
     Active Substance: NIACIN
     Route: 065
  13. TRAZODONE [Concomitant]
     Active Substance: TRAZODONE HYDROCHLORIDE
     Route: 065
  14. AMLODIPINE [Concomitant]
     Active Substance: AMLODIPINE BESYLATE
     Route: 065
  15. CLONAZEPAM. [Concomitant]
     Active Substance: CLONAZEPAM
     Route: 065
  16. METOPROLOL. [Concomitant]
     Active Substance: METOPROLOL
     Route: 065

REACTIONS (2)
  - Product dose omission [Unknown]
  - Throat cancer [Not Recovered/Not Resolved]
